FAERS Safety Report 7207938-0 (Version None)
Quarter: 2010Q4

REPORT INFORMATION
  Report Type: 
  Country: None (occurrence: None)
  Receive Date: 20101221
  Receipt Date: 20101207
  Transmission Date: 20110411
  Serious: Yes (Hospitalization)
  Sender: FDA-Public Use
  Company Number: JPI-P-011459

PATIENT
  Age: 51 Year
  Sex: Female
  Weight: 58.9676 kg

DRUGS (10)
  1. XYREM [Suspect]
     Indication: FIBROMYALGIA
     Dosage: 9 GM (4.5 MG, 2 IN 1 D),ORAL; 9MG (4.5 GM, 2 IN 1 D), ORAL; 9GM (4.5 GM, 2 IN 1D),ORAL
     Route: 048
     Dates: start: 20070625, end: 20070101
  2. XYREM [Suspect]
     Indication: NARCOLEPSY
     Dosage: 9 GM (4.5 MG, 2 IN 1 D),ORAL; 9MG (4.5 GM, 2 IN 1 D), ORAL; 9GM (4.5 GM, 2 IN 1D),ORAL
     Route: 048
     Dates: start: 20070625, end: 20070101
  3. XYREM [Suspect]
     Indication: FIBROMYALGIA
     Dosage: 9 GM (4.5 MG, 2 IN 1 D),ORAL; 9MG (4.5 GM, 2 IN 1 D), ORAL; 9GM (4.5 GM, 2 IN 1D),ORAL
     Route: 048
     Dates: start: 20100201, end: 20100101
  4. XYREM [Suspect]
     Indication: NARCOLEPSY
     Dosage: 9 GM (4.5 MG, 2 IN 1 D),ORAL; 9MG (4.5 GM, 2 IN 1 D), ORAL; 9GM (4.5 GM, 2 IN 1D),ORAL
     Route: 048
     Dates: start: 20100201, end: 20100101
  5. XYREM [Suspect]
     Indication: FIBROMYALGIA
     Dosage: 9 GM (4.5 MG, 2 IN 1 D),ORAL; 9MG (4.5 GM, 2 IN 1 D), ORAL; 9GM (4.5 GM, 2 IN 1D),ORAL
     Route: 048
     Dates: start: 20100101
  6. XYREM [Suspect]
     Indication: NARCOLEPSY
     Dosage: 9 GM (4.5 MG, 2 IN 1 D),ORAL; 9MG (4.5 GM, 2 IN 1 D), ORAL; 9GM (4.5 GM, 2 IN 1D),ORAL
     Route: 048
     Dates: start: 20100101
  7. CLONAZEPAM [Concomitant]
  8. ACETAMINOPHEN/HYDROCODONE BITARTRATE [Concomitant]
  9. LEVOTHYROXINE SODIUM [Concomitant]
  10. CORTISOL [Concomitant]

REACTIONS (3)
  - BIPOLAR DISORDER [None]
  - DELUSION [None]
  - INSOMNIA [None]
